FAERS Safety Report 4609725-6 (Version None)
Quarter: 2005Q1

REPORT INFORMATION
  Report Type: 
  Country: None (occurrence: None)
  Receive Date: 20050314
  Receipt Date: 20050314
  Transmission Date: 20050727
  Serious: Yes (Hospitalization)
  Sender: FDA-Public Use
  Company Number: None

PATIENT
  Age: 71 Year
  Sex: Female
  Weight: 61.7 kg

DRUGS (1)
  1. ASPIRIN [Suspect]
     Indication: CORONARY ARTERY DISEASE
     Dosage: 81 MG DAILY ORAL
     Route: 048

REACTIONS (6)
  - ANOREXIA [None]
  - FAECES DISCOLOURED [None]
  - HAEMATEMESIS [None]
  - HAEMATOCHEZIA [None]
  - HAEMORRHOIDS [None]
  - NAUSEA [None]
